FAERS Safety Report 15941079 (Version 5)
Quarter: 2019Q1

REPORT INFORMATION
  Report Type: Spontaneous
  Country: FR (occurrence: FR)
  Receive Date: 20190208
  Receipt Date: 20190318
  Transmission Date: 20190417
  Serious: Yes (Death, Hospitalization)
  Sender: FDA-Public Use
  Company Number: FR-CELGENEUS-FRA-20190202100

PATIENT
  Age: 87 Year
  Sex: Male

DRUGS (13)
  1. DEPAKOTE [Concomitant]
     Active Substance: DIVALPROEX SODIUM
     Indication: ANXIETY
     Dosage: 500 MILLIGRAM
     Route: 048
  2. PARACETAMOL [Concomitant]
     Active Substance: ACETAMINOPHEN
     Indication: PAIN
     Dosage: 1 GRAM
     Route: 048
     Dates: start: 20170124
  3. SEROPLEX [Concomitant]
     Active Substance: ESCITALOPRAM OXALATE
     Indication: DEPRESSION
     Dosage: 10 MILLIGRAM
     Route: 048
     Dates: start: 20170904
  4. MACROGOL [Concomitant]
     Active Substance: POLYETHYLENE GLYCOLS
     Indication: CONSTIPATION
     Route: 048
  5. VITAMIN D3 [Concomitant]
     Active Substance: CHOLECALCIFEROL
     Indication: PROPHYLAXIS
     Dosage: 1000 MILLIGRAM
     Route: 048
     Dates: start: 20170818
  6. PERMIXON [Concomitant]
     Active Substance: HERBALS\SAW PALMETTO
     Indication: BENIGN PROSTATIC HYPERPLASIA
     Dosage: 160 MILLIGRAM
     Route: 048
  7. ALPRAZOLAM. [Concomitant]
     Active Substance: ALPRAZOLAM
     Indication: ANXIETY
     Dosage: .75 MILLIGRAM
     Route: 048
     Dates: start: 20170222
  8. EPOETIN ZETA [Concomitant]
     Active Substance: ERYTHROPOIETIN
     Indication: ANAEMIA
     Dosage: DOSE NOT PROVIDED
     Route: 065
  9. REVLIMID [Suspect]
     Active Substance: LENALIDOMIDE
     Indication: PLASMA CELL MYELOMA
     Dosage: 10 OR 25 MG?MEDICATION KIT NUMBER WAS 185690
     Route: 048
     Dates: start: 20160617, end: 201901
  10. FORTIMEL [Concomitant]
     Active Substance: DIETARY SUPPLEMENT
     Indication: MALNUTRITION
     Route: 048
     Dates: start: 20170111
  11. DEXAMETHASONE ORAL [Suspect]
     Active Substance: DEXAMETHASONE
     Indication: PLASMA CELL MYELOMA
     Dosage: 10 MILLIGRAM
     Route: 048
     Dates: start: 20160616, end: 20170817
  12. DEXAMETHASONE ORAL [Suspect]
     Active Substance: DEXAMETHASONE
     Dosage: 20 MILLIGRAM
     Route: 048
     Dates: start: 20160616, end: 20170817
  13. LOVENOX [Concomitant]
     Active Substance: ENOXAPARIN SODIUM
     Indication: THROMBOSIS PROPHYLAXIS
     Dosage: .6 MILLILITER
     Route: 058
     Dates: start: 20170726

REACTIONS (4)
  - Sepsis [Fatal]
  - Multiple organ dysfunction syndrome [Fatal]
  - Drug-induced liver injury [Not Recovered/Not Resolved]
  - Lung infection [Not Recovered/Not Resolved]

NARRATIVE: CASE EVENT DATE: 20190109
